FAERS Safety Report 4969445-5 (Version None)
Quarter: 2006Q2

REPORT INFORMATION
  Report Type: 
  Country: None (occurrence: None)
  Receive Date: 20060405
  Receipt Date: 20060327
  Transmission Date: 20061013
  Serious: Yes (Other)
  Sender: FDA-Public Use
  Company Number: 2006042909

PATIENT
  Age: 56 Year
  Sex: Female
  Weight: 74.8435 kg

DRUGS (3)
  1. NORVASC [Suspect]
     Indication: HYPERTENSION
     Dosage: 2.5 MG (2.5 MG, QD INTERVAL: EVERY DAY), ORAL
     Route: 048
  2. PRAVACHOL [Concomitant]
  3. VITAMINS [Concomitant]

REACTIONS (4)
  - GENITAL DISORDER FEMALE [None]
  - INFLAMMATION [None]
  - RASH PAPULAR [None]
  - VITAMIN D DEFICIENCY [None]
